FAERS Safety Report 18190929 (Version 1)
Quarter: 2020Q3

REPORT INFORMATION
  Report Type: Other
  Country: FR (occurrence: FR)
  Receive Date: 20200825
  Receipt Date: 20200825
  Transmission Date: 20201103
  Serious: Yes (Death, Other)
  Sender: FDA-Public Use
  Company Number: FR-DENTSPLY-2020SCDP000267

PATIENT
  Age: 64 Year
  Sex: Female
  Weight: 50 kg

DRUGS (4)
  1. SUFENTANIL [Suspect]
     Active Substance: SUFENTANIL
     Indication: ANALGESIC THERAPY
     Dosage: UNK
     Route: 042
     Dates: start: 20200701, end: 20200701
  2. XYLOCAINE WITH ADRENALINE (EPINEPHRINE) [Suspect]
     Active Substance: EPINEPHRINE BITARTRATE\LIDOCAINE HYDROCHLORIDE
     Indication: GENERAL ANAESTHESIA
     Dosage: UNK
     Route: 065
     Dates: start: 20200701, end: 20200701
  3. BLUE PATENTE V [Suspect]
     Active Substance: SULFAN BLUE
     Indication: LYMPHATIC MAPPING
     Dosage: BLUE PATENTE V SODIUM GUERBET 2.5 PERCENT, SOLUTION FOR INJECTION
     Route: 058
     Dates: start: 20200701, end: 20200701
  4. PROPOFOL. [Suspect]
     Active Substance: PROPOFOL
     Indication: INDUCTION OF ANAESTHESIA
     Dosage: UNK
     Route: 042
     Dates: start: 20200701, end: 20200701

REACTIONS (1)
  - Anaphylactic shock [Fatal]

NARRATIVE: CASE EVENT DATE: 20200701
